FAERS Safety Report 18964821 (Version 1)
Quarter: 2021Q1

REPORT INFORMATION
  Report Type: Spontaneous
  Country: US (occurrence: US)
  Receive Date: 20210303
  Receipt Date: 20210303
  Transmission Date: 20210420
  Serious: No
  Sender: FDA-Public Use
  Company Number: US-AMNEAL PHARMACEUTICALS-2020-AMRX-01149

PATIENT
  Age: 71 Year
  Sex: Female
  Weight: 65 kg

DRUGS (4)
  1. RYTARY [Suspect]
     Active Substance: CARBIDOPA\LEVODOPA
     Indication: PARKINSON^S DISEASE
     Dosage: 5 CAPSULES, DAILY
     Route: 048
     Dates: start: 2020, end: 202004
  2. RYTARY [Suspect]
     Active Substance: CARBIDOPA\LEVODOPA
     Dosage: 5 CAPSULES, DAILY
     Route: 048
     Dates: start: 202004
  3. RYTARY [Suspect]
     Active Substance: CARBIDOPA\LEVODOPA
     Dosage: 5 CAPSULES, DAILY
     Route: 048
     Dates: end: 2020
  4. RASAGILINE. [Concomitant]
     Active Substance: RASAGILINE
     Indication: PARKINSON^S DISEASE
     Dosage: 0.5 DOSAGE FORM, 1X/DAY, (HALF A PILL ONCE A DAY)
     Route: 065

REACTIONS (4)
  - Therapeutic response shortened [Recovered/Resolved]
  - Freezing phenomenon [Recovered/Resolved]
  - Gingival disorder [Recovered/Resolved]
  - Tremor [Recovered/Resolved]

NARRATIVE: CASE EVENT DATE: 20200402
